FAERS Safety Report 10223974 (Version 1)
Quarter: 2014Q2

REPORT INFORMATION
  Report Type: Spontaneous
  Country: SE (occurrence: SE)
  Receive Date: 20140609
  Receipt Date: 20140609
  Transmission Date: 20141212
  Serious: Yes (Hospitalization)
  Sender: FDA-Public Use
  Company Number: SE-TEVA-484829ISR

PATIENT
  Age: 79 Year
  Sex: Female

DRUGS (10)
  1. OXASCAND [Suspect]
     Dosage: DOSAGE: 1X1-3 AS REQUIRED
     Dates: end: 201404
  2. XANOR [Suspect]
     Dosage: 0.5 MG AS REQUIRED
  3. ATORVASTAD [Concomitant]
  4. BRILIQUE [Concomitant]
  5. FURIX [Concomitant]
  6. RAMIPRIL [Concomitant]
  7. SELOKEN [Concomitant]
  8. SPIRONOLACTONE [Concomitant]
  9. TROMBYL [Concomitant]
  10. MOVICOL [Concomitant]

REACTIONS (3)
  - Depressed level of consciousness [Unknown]
  - Bradycardia [Unknown]
  - Accidental poisoning [Unknown]
